FAERS Safety Report 18871275 (Version 1)
Quarter: 2021Q1

REPORT INFORMATION
  Report Type: Spontaneous
  Country: IN (occurrence: IN)
  Receive Date: 20210210
  Receipt Date: 20210210
  Transmission Date: 20210420
  Serious: Yes (Hospitalization, Other)
  Sender: FDA-Public Use
  Company Number: IN-LUPIN LIMITED-2021-01412

PATIENT
  Age: 12 Year
  Sex: Male

DRUGS (16)
  1. HYDROCORTISONE. [Suspect]
     Active Substance: HYDROCORTISONE
     Indication: BURKITT^S LEUKAEMIA
     Dosage: UNK (DURING PREPHASE REGIMEN)
     Route: 037
  2. METHOTREXATE. [Interacting]
     Active Substance: METHOTREXATE
     Dosage: UNK (RECEIVED 3 DOSES ON DAYS 2, 4 AND 6 DURING INDUCTION CHEMOTHERAPY)
     Route: 037
  3. CYCLOPHOSPHAMIDE. [Interacting]
     Active Substance: CYCLOPHOSPHAMIDE
     Indication: BURKITT^S LEUKAEMIA
     Dosage: 300 MILLIGRAM/SQ. METER, UNK (SINGLE DOSE DURING PREPHASE REGIMEN)
     Route: 065
  4. RITUXIMAB. [Suspect]
     Active Substance: RITUXIMAB
     Indication: BURKITT^S LEUKAEMIA
     Dosage: 375 MILLIGRAM/SQ. METER, UNK (RECEIVED 2 DOSES ON ALTERNATE DAYS DURING PREPHASE REGIMEN)
     Route: 065
  5. CYTARABINE. [Concomitant]
     Active Substance: CYTARABINE
     Indication: BURKITT^S LEUKAEMIA
     Dosage: UNK (DURING PREPHASE REGIMEN)
     Route: 037
  6. LEUCOVORINE [Concomitant]
     Active Substance: LEUCOVORIN
     Indication: PRODUCT USED FOR UNKNOWN INDICATION
     Dosage: 15 MILLIGRAM/SQ. METER, UNK (RECEIVED 16 DOSES RESCUE AFTER 24 HOURS OF HIGH DOSE METHOTREXATE)
     Route: 065
  7. METHOTREXATE. [Interacting]
     Active Substance: METHOTREXATE
     Indication: BURKITT^S LEUKAEMIA
     Dosage: UNK (DURING PREPHASE REGIMEN)
     Route: 037
  8. PREDNISOLONE. [Suspect]
     Active Substance: PREDNISOLONE
     Indication: BURKITT^S LEUKAEMIA
     Dosage: 60 MILLIGRAM/SQ. METER, QD (DURING PREPHASE REGIMEN)
     Route: 048
  9. PREDNISOLONE. [Suspect]
     Active Substance: PREDNISOLONE
     Dosage: 60 MILLIGRAM/SQ. METER, QD (DURING INDUCTION CHEMOTHERAPY)
     Route: 048
  10. VINCRISTINE [Suspect]
     Active Substance: VINCRISTINE
     Indication: BURKITT^S LEUKAEMIA
     Dosage: 1 MILLIGRAM/SQ. METER, UNK (SINGLE DOSE DURING PREPHASE REGIMEN)
     Route: 065
  11. DOXORUBICIN [Interacting]
     Active Substance: DOXORUBICIN
     Indication: BURKITT^S LEUKAEMIA
     Dosage: 60 MILLIGRAM/SQ. METER, UNK (RECEIVED ON DAY 2 DURING INDUCTION CHEMOTHERAPY)
     Route: 065
  12. CYTARABINE. [Concomitant]
     Active Substance: CYTARABINE
     Dosage: UNK (RECEIVED 3 DOSES ON DAYS 2, 4 AND 6 DURING INDUCTION CHEMOTHERAPY)
     Route: 037
  13. HYDROCORTISONE. [Suspect]
     Active Substance: HYDROCORTISONE
     Dosage: UNK (RECEIVED 3 DOSES ON DAYS 2, 4 AND 6 DURING INDUCTION CHEMOTHERAPY)
     Route: 037
  14. VINCRISTINE [Suspect]
     Active Substance: VINCRISTINE
     Dosage: 2 MILLIGRAM/SQ. METER, UNK (RECEIVED ON DAY 1 DURING INDUCTION CHEMOTHERAPY)
     Route: 065
  15. METHOTREXATE. [Interacting]
     Active Substance: METHOTREXATE
     Dosage: UNK (RECEIVED HIGH DOSE METHOTREXATE 8 G/M2 OVER 4 HOURS ON DAY 1 DURING INDUCTION CHEMOTHERAPY)
     Route: 065
  16. CYCLOPHOSPHAMIDE. [Interacting]
     Active Substance: CYCLOPHOSPHAMIDE
     Dosage: 500 MILLIGRAM/SQ. METER, QD (RECEIVED ON DAYS 2?4 DURING INDUCTION CHEMOTHERAPY)
     Route: 065

REACTIONS (4)
  - Febrile neutropenia [Recovered/Resolved]
  - Mucosal inflammation [Recovered/Resolved]
  - Drug-induced liver injury [Recovered/Resolved]
  - Weight decreased [Recovered/Resolved]
